FAERS Safety Report 25821710 (Version 1)
Quarter: 2025Q3

REPORT INFORMATION
  Report Type: Report from Study
  Country: US (occurrence: US)
  Receive Date: 20250919
  Receipt Date: 20250919
  Transmission Date: 20251020
  Serious: Yes (Other)
  Sender: ACADIA PHARMACEUTICALS
  Company Number: US-ACADIA PHARMACEUTICALS INC.-ACA-2025-PIM-010354

PATIENT
  Sex: Male

DRUGS (7)
  1. NUPLAZID [Suspect]
     Active Substance: PIMAVANSERIN TARTRATE
     Indication: Parkinson^s disease
     Dosage: 34 MILLIGRAM, QD (DAILY AT BEDTIME)
     Route: 048
     Dates: start: 20250107
  2. CREXONT [Concomitant]
     Active Substance: CARBIDOPA\LEVODOPA
  3. FOLIC ACID [Concomitant]
     Active Substance: FOLIC ACID
  4. CITALOPRAM [Concomitant]
     Active Substance: CITALOPRAM
  5. MIRTAZAPINE [Concomitant]
     Active Substance: MIRTAZAPINE
  6. VITAMIN D2 [Concomitant]
     Active Substance: ERGOCALCIFEROL
  7. VITAMIN C [Concomitant]
     Active Substance: ASCORBIC ACID

REACTIONS (4)
  - Hallucination [Not Recovered/Not Resolved]
  - Hallucination, visual [Not Recovered/Not Resolved]
  - Hallucination, tactile [Not Recovered/Not Resolved]
  - Condition aggravated [Not Recovered/Not Resolved]
